FAERS Safety Report 11225683 (Version 3)
Quarter: 2018Q3

REPORT INFORMATION
  Report Type: Spontaneous
  Country: IT (occurrence: IT)
  Receive Date: 20150629
  Receipt Date: 20180917
  Transmission Date: 20181010
  Serious: Yes (Death, Other)
  Sender: FDA-Public Use
  Company Number: PHHY2015IT074811

PATIENT
  Age: 39 Year
  Sex: Male

DRUGS (9)
  1. CARBOPLATIN. [Suspect]
     Active Substance: CARBOPLATIN
     Indication: CHEMOTHERAPY
     Dosage: UNK
     Route: 065
  2. DOCETAXEL. [Suspect]
     Active Substance: DOCETAXEL
     Indication: CHEMOTHERAPY
     Dosage: UNK
     Route: 065
  3. IFOSFAMIDE. [Suspect]
     Active Substance: IFOSFAMIDE
     Indication: CHEMOTHERAPY
     Route: 065
  4. DEXAMETHASONE. [Concomitant]
     Active Substance: DEXAMETHASONE
     Indication: SARCOMA
     Dosage: 20 MG/M2, UNK
     Route: 065
  5. ETOPOSIDE. [Suspect]
     Active Substance: ETOPOSIDE
     Indication: CHEMOTHERAPY
     Route: 065
  6. IRINOTECAN [Suspect]
     Active Substance: IRINOTECAN
     Indication: SARCOMA
     Dosage: 75 MG/SQM ON DAY 2 AND THEN ON DAAYS 2 AND 4, EVERY 3 WEEKS FROM THE SEVENTH COURSE
     Route: 042
     Dates: start: 20131016, end: 20170711
  7. DEXAMETHASONE. [Concomitant]
     Active Substance: DEXAMETHASONE
     Indication: PREMEDICATION
  8. GEMCITABINE [Suspect]
     Active Substance: GEMCITABINE\GEMCITABINE HYDROCHLORIDE
     Indication: CHEMOTHERAPY
     Dosage: UNK
     Route: 065
  9. YONDELIS [Suspect]
     Active Substance: TRABECTEDIN
     Indication: SARCOMA
     Dosage: 1 MG/SQM
     Route: 042
     Dates: start: 20130918, end: 20140708

REACTIONS (7)
  - Cerebrovascular accident [Fatal]
  - Diarrhoea [Fatal]
  - Drug ineffective [Unknown]
  - Haematotoxicity [Fatal]
  - Transaminases increased [Fatal]
  - Off label use [Fatal]
  - Hepatotoxicity [Fatal]
